FAERS Safety Report 10609779 (Version 2)
Quarter: 2014Q4

REPORT INFORMATION
  Report Type: Spontaneous
  Country: US (occurrence: US)
  Receive Date: 20141126
  Receipt Date: 20141230
  Transmission Date: 20150529
  Serious: Yes (Other)
  Sender: FDA-Public Use
  Company Number: US-AMGEN-USASP2014090288

PATIENT
  Age: 89 Year
  Sex: Male

DRUGS (3)
  1. DANAZOL. [Concomitant]
     Active Substance: DANAZOL
  2. NPLATE [Suspect]
     Active Substance: ROMIPLOSTIM
     Indication: IMMUNE THROMBOCYTOPENIC PURPURA
     Dosage: 10 MUG/KG, UNK
     Route: 065
     Dates: start: 20131016
  3. RITUXAN [Concomitant]
     Active Substance: RITUXIMAB

REACTIONS (2)
  - Platelet count abnormal [Unknown]
  - Drug effect incomplete [Unknown]

NARRATIVE: CASE EVENT DATE: 201406
